FAERS Safety Report 8981127 (Version 2)
Quarter: 2013Q1

REPORT INFORMATION
  Report Type: Spontaneous
  Country: US (occurrence: US)
  Receive Date: 20121221
  Receipt Date: 20130204
  Transmission Date: 20140127
  Serious: Yes (Other)
  Sender: FDA-Public Use
  Company Number: US-PFIZER INC-2012324926

PATIENT
  Age: 59 Year
  Sex: Female
  Weight: 45.35 kg

DRUGS (2)
  1. EFFEXOR [Suspect]
     Indication: CHRONIC FATIGUE SYNDROME
     Dosage: UNK
  2. LEVOXYL [Concomitant]
     Indication: HYPERTHYROIDISM
     Dosage: 100 UG, DAILY

REACTIONS (2)
  - Off label use [Unknown]
  - Hearing impaired [Unknown]
